FAERS Safety Report 13539456 (Version 4)
Quarter: 2018Q2

REPORT INFORMATION
  Report Type: Spontaneous
  Country: US (occurrence: US)
  Receive Date: 20170512
  Receipt Date: 20180412
  Transmission Date: 20180711
  Serious: Yes (Other)
  Sender: FDA-Public Use
  Company Number: US-PFIZER INC-2017208017

PATIENT
  Age: 56 Year
  Sex: Female
  Weight: 108.8 kg

DRUGS (5)
  1. FEMARA [Concomitant]
     Active Substance: LETROZOLE
     Indication: BREAST CANCER METASTATIC
  2. FEMARA [Concomitant]
     Active Substance: LETROZOLE
     Indication: BONE CANCER
     Dosage: 2.5 MG, DAILY
     Route: 048
     Dates: start: 20170407
  3. IBRANCE [Suspect]
     Active Substance: PALBOCICLIB
     Indication: INVASIVE DUCTAL BREAST CARCINOMA
  4. IBRANCE [Suspect]
     Active Substance: PALBOCICLIB
     Indication: BONE CANCER
     Dosage: 125 MG, CYCLIC (ONCE A DAY BY MOUTH FOR 21 DAYS
     Route: 048
     Dates: start: 20170419
  5. IBRANCE [Suspect]
     Active Substance: PALBOCICLIB
     Indication: BREAST CANCER METASTATIC
     Dosage: 125 MG, DAILY (ON DAYS 1-21 OF 28-DAYS CYCLE)
     Route: 048
     Dates: start: 20170424

REACTIONS (14)
  - Nasal discomfort [Unknown]
  - Alopecia [Unknown]
  - Neoplasm progression [Unknown]
  - Madarosis [Unknown]
  - Decreased appetite [Unknown]
  - Dyspepsia [Not Recovered/Not Resolved]
  - Chills [Unknown]
  - Nausea [Unknown]
  - Dysphagia [Unknown]
  - Gastrooesophageal reflux disease [Unknown]
  - Choking [Unknown]
  - Stomatitis [Recovered/Resolved]
  - Parosmia [Unknown]
  - Burning sensation [Unknown]

NARRATIVE: CASE EVENT DATE: 201705
